FAERS Safety Report 11660881 (Version 2)
Quarter: 2015Q4

REPORT INFORMATION
  Report Type: Report from Study
  Country: ES (occurrence: ES)
  Receive Date: 20151026
  Receipt Date: 20151103
  Transmission Date: 20160304
  Serious: Yes (Hospitalization, Other)
  Sender: FDA-Public Use
  Company Number: ES-GILEAD-2015-0170180

PATIENT
  Sex: Male
  Weight: 84.4 kg

DRUGS (20)
  1. RITUXIMAB [Suspect]
     Active Substance: RITUXIMAB
     Dosage: 787 MG, Q1WK
     Route: 042
     Dates: start: 20150414, end: 20150414
  2. RITUXIMAB [Suspect]
     Active Substance: RITUXIMAB
     Dosage: 787 MG, Q1WK
     Route: 042
     Dates: start: 20150421, end: 20150421
  3. ALOPURINOL [Concomitant]
     Active Substance: ALLOPURINOL
     Indication: HYPERURICAEMIA
     Route: 048
     Dates: start: 20150627
  4. FUROSEMIDE. [Concomitant]
     Active Substance: FUROSEMIDE
     Route: 048
     Dates: start: 20150319
  5. RITUXIMAB [Suspect]
     Active Substance: RITUXIMAB
     Dosage: 787 MG, Q1WK
     Route: 042
     Dates: start: 20150331, end: 20150331
  6. RITUXIMAB [Suspect]
     Active Substance: RITUXIMAB
     Dosage: 787 MG, Q1WK
     Route: 042
     Dates: start: 20150407, end: 20150407
  7. RITUXIMAB [Suspect]
     Active Substance: RITUXIMAB
     Dosage: 787 MG, Q1WK
     Route: 042
     Dates: start: 20150428, end: 20150428
  8. OMEPRAZOLE. [Concomitant]
     Active Substance: OMEPRAZOLE
     Route: 048
     Dates: start: 2011
  9. PARACETAMOL [Concomitant]
     Active Substance: ACETAMINOPHEN
     Indication: BONE PAIN
     Route: 048
     Dates: start: 201408
  10. IDELALISIB [Suspect]
     Active Substance: IDELALISIB
     Indication: CHRONIC LYMPHOCYTIC LEUKAEMIA
     Dosage: 150 MG, BID
     Route: 048
     Dates: start: 20150617, end: 20150827
  11. RITUXIMAB [Suspect]
     Active Substance: RITUXIMAB
     Indication: CHRONIC LYMPHOCYTIC LEUKAEMIA
     Dosage: 787 MG, Q1WK
     Route: 042
     Dates: start: 20150505, end: 20150505
  12. INSULIN GLARGINE [Concomitant]
     Active Substance: INSULIN GLARGINE
     Route: 058
     Dates: start: 20150319
  13. INSULIN ASPART [Concomitant]
     Active Substance: INSULIN ASPART
     Route: 058
     Dates: start: 20150410
  14. RITUXIMAB [Suspect]
     Active Substance: RITUXIMAB
     Dosage: 787 MG, Q1WK
     Route: 042
     Dates: start: 20150317, end: 20150318
  15. RITUXIMAB [Suspect]
     Active Substance: RITUXIMAB
     Dosage: 787 MG, Q1WK
     Route: 042
     Dates: start: 20150324, end: 20150324
  16. BISOPROLOL [Concomitant]
     Active Substance: BISOPROLOL
     Indication: AORTIC VALVE REPLACEMENT
     Route: 048
     Dates: start: 201111
  17. DOXAZOSIN [Concomitant]
     Active Substance: DOXAZOSIN\DOXAZOSIN MESYLATE
     Indication: HYPERTENSION
     Route: 048
     Dates: start: 2014
  18. IDELALISIB [Suspect]
     Active Substance: IDELALISIB
     Dosage: 150 MG, BID
     Route: 048
     Dates: start: 20150317, end: 20150529
  19. ENOXAPARIN [Concomitant]
     Active Substance: ENOXAPARIN
     Indication: AORTIC VALVE REPLACEMENT
     Route: 058
     Dates: start: 20150227
  20. OLMESARTAN [Concomitant]
     Active Substance: OLMESARTAN
     Indication: HYPERTENSION
     Route: 048
     Dates: start: 2014

REACTIONS (3)
  - Diarrhoea [None]
  - Renal impairment [None]
  - Sepsis [Recovered/Resolved]

NARRATIVE: CASE EVENT DATE: 20150828
